FAERS Safety Report 4282062-8 (Version None)
Quarter: 2004Q1

REPORT INFORMATION
  Report Type: 
  Country: None (occurrence: None)
  Receive Date: 20040130
  Receipt Date: 20020826
  Transmission Date: 20041129
  Serious: No
  Sender: FDA-Public Use
  Company Number: US-BRISTOL-MYERS SQUIBB COMPANY-12013264

PATIENT
  Age: 49 Year
  Sex: Female

DRUGS (5)
  1. DESYREL [Suspect]
     Indication: DEPRESSION
     Route: 048
     Dates: start: 20020625, end: 20020802
  2. DESYREL [Suspect]
     Indication: SLEEP DISORDER
     Route: 048
     Dates: start: 20020625, end: 20020802
  3. FLUVOXAMINE MALEATE [Concomitant]
     Dates: start: 20020625, end: 20020715
  4. EFFEXOR [Concomitant]
     Dates: start: 20020716, end: 20020717
  5. IMIPRAMINE [Concomitant]
     Dates: start: 20020729

REACTIONS (4)
  - ENDOMETRIAL HYPERTROPHY [None]
  - MENSTRUATION IRREGULAR [None]
  - OVARIAN ENLARGEMENT [None]
  - UTERINE LEIOMYOMA [None]
